FAERS Safety Report 22349799 (Version 1)
Quarter: 2023Q2

REPORT INFORMATION
  Report Type: Spontaneous
  Country: ES (occurrence: ES)
  Receive Date: 20230522
  Receipt Date: 20230522
  Transmission Date: 20230722
  Serious: Yes (Other)
  Sender: FDA-Public Use
  Company Number: ES-AUROBINDO-AUR-APL-2023-036031

PATIENT
  Age: 62 Year
  Sex: Female
  Weight: 90 kg

DRUGS (30)
  1. QUETIAPINE [Suspect]
     Active Substance: QUETIAPINE
     Indication: Personality disorder
     Dosage: 400 MILLIGRAM (0-0-1- 0)
     Route: 065
  2. QUETIAPINE [Suspect]
     Active Substance: QUETIAPINE
     Dosage: 0.5 MILLIGRAM, ONCE A DAY
     Route: 065
  3. PRAMIPEXOLE [Suspect]
     Active Substance: PRAMIPEXOLE
     Indication: Tremor
     Dosage: 1.05 MILLIGRAM (1-0-0-0)
     Route: 065
  4. PRAMIPEXOLE [Suspect]
     Active Substance: PRAMIPEXOLE
     Indication: Parkinsonism
  5. METFORMIN [Suspect]
     Active Substance: METFORMIN HYDROCHLORIDE
     Indication: Diabetes mellitus
     Dosage: 1.05 MILLIGRAM, ONCE A DAY
     Route: 065
  6. METFORMIN [Suspect]
     Active Substance: METFORMIN HYDROCHLORIDE
     Dosage: 2000 MILLIGRAM, ONCE A DAY
     Route: 065
     Dates: start: 2010
  7. FUROSEMIDE [Suspect]
     Active Substance: FUROSEMIDE
     Indication: Hypertension
     Dosage: 40 MILLIGRAM  (1-0.5-0-0)
     Route: 065
     Dates: start: 2014
  8. GABAPENTIN [Suspect]
     Active Substance: GABAPENTIN
     Indication: Arthralgia
     Dosage: 300 MILLIGRAM, 3 TIMES A DAY
     Route: 065
  9. MANIDIPINE [Suspect]
     Active Substance: MANIDIPINE
     Indication: Hypertension
     Dosage: 10 MILLIGRAM, TWO TIMES A DAY,10 MILLIGRAM (0-0-2-0)
     Route: 065
     Dates: start: 2014
  10. VALSARTAN [Suspect]
     Active Substance: VALSARTAN
     Indication: Hypertension
     Dosage: 30 MILLIGRAM (1-0-0-0)
     Route: 065
  11. VALSARTAN [Suspect]
     Active Substance: VALSARTAN
     Dosage: 320 MILLIGRAM, ONCE A DAY
     Route: 065
     Dates: start: 2014
  12. AMISULPRIDE [Concomitant]
     Active Substance: AMISULPRIDE
     Indication: Personality disorder
     Dosage: 100 MILLIGRAM (0-0-0-0.5)
     Route: 065
  13. ATORVASTATIN [Concomitant]
     Active Substance: ATORVASTATIN
     Indication: Hypercholesterolaemia
     Dosage: 40 MILLIGRAM (0-0-1-0)
     Route: 065
  14. ALPRAZOLAM [Concomitant]
     Active Substance: ALPRAZOLAM
     Indication: Personality disorder
     Dosage: 0.5 MILLIGRAM (0-0-1-0)
     Route: 065
  15. CALCIFEDIOL [Concomitant]
     Active Substance: CALCIFEDIOL
     Indication: Vitamin D deficiency
     Dosage: 0.266 MILLIGRAM (1 UD /MONTH)
     Route: 065
  16. CLOPIDOGREL [Concomitant]
     Active Substance: CLOPIDOGREL BISULFATE
     Indication: Cerebrovascular accident
     Dosage: 75 MILLIGRAM (0-1-0-0)
     Route: 065
  17. EMPAGLIFLOZIN\METFORMIN HYDROCHLORIDE [Concomitant]
     Active Substance: EMPAGLIFLOZIN\METFORMIN HYDROCHLORIDE
     Indication: Diabetes mellitus
     Dosage: 1000 MG/5 MG (1-0-1-0)
     Route: 065
  18. Indacaterol maleate and glycopyrronium bromide [Concomitant]
     Indication: Chronic obstructive pulmonary disease
     Dosage: 85/43 MCG, ONCE A DAY
     Route: 065
     Dates: start: 2018
  19. KETAZOLAM [Concomitant]
     Active Substance: KETAZOLAM
     Indication: Hallucination
     Dosage: 15 MILLIGRAM, ONCE A DAY
     Route: 065
  20. LIRAGLUTIDE [Concomitant]
     Active Substance: LIRAGLUTIDE
     Indication: Diabetes mellitus
     Dosage: UNK, EVERY WEEK,(UNK, EVERY WEE)
     Route: 065
  21. LORMETAZEPAM [Concomitant]
     Active Substance: LORMETAZEPAM
     Indication: Personality disorder
     Dosage: 2 MILLIGRAM (0-0-0-1)
     Route: 065
  22. PANTOPRAZOLE [Concomitant]
     Active Substance: PANTOPRAZOLE
     Indication: Gastrooesophageal reflux disease
     Dosage: 40 MILLIGRAM  (1-0-0-0)
     Route: 065
  23. PIMOZIDE [Concomitant]
     Active Substance: PIMOZIDE
     Indication: Personality disorder
     Dosage: 1 MILLIGRAM (0-0-1-0)
     Route: 065
  24. ALBUTEROL [Concomitant]
     Active Substance: ALBUTEROL
     Indication: Chronic obstructive pulmonary disease
     Dosage: 100 MICROGRAM
     Route: 065
  25. ACETAMINOPHEN\TRAMADOL [Concomitant]
     Active Substance: ACETAMINOPHEN\TRAMADOL
     Indication: Arthralgia
     Dosage: 75 MG/650 MG (1-1-1-0)
     Route: 065
  26. TRAMADOL [Concomitant]
     Active Substance: TRAMADOL
     Indication: Arthralgia
     Dosage: 100 MILLIGRAM PER MILLILITRE
     Route: 065
  27. TRAMADOL [Concomitant]
     Active Substance: TRAMADOL
     Dosage: 75 MILLIGRAM
     Route: 065
  28. VORTIOXETINE [Concomitant]
     Active Substance: VORTIOXETINE
     Indication: Personality disorder
     Dosage: 15 MILLIGRAM (1-0-0-0)
     Route: 065
  29. EMPAGLIFLOZIN [Concomitant]
     Active Substance: EMPAGLIFLOZIN
     Indication: Diabetes mellitus
     Dosage: 5 MILLIGRAM
     Route: 065
  30. ACETAMINOPHEN [Concomitant]
     Active Substance: ACETAMINOPHEN
     Indication: Arthralgia
     Dosage: 650 MILLIGRAM, 3 TIMES A DAY
     Route: 065
     Dates: start: 2019

REACTIONS (6)
  - Hallucination [Recovered/Resolved]
  - Parkinsonism [Recovered/Resolved]
  - Drug interaction [Recovered/Resolved]
  - Hypotension [Recovered/Resolved]
  - Hypoglycaemia [Recovered/Resolved]
  - Somnolence [Recovered/Resolved]
